FAERS Safety Report 7541143-3 (Version None)
Quarter: 2011Q2

REPORT INFORMATION
  Report Type: 
  Country: None (occurrence: None)
  Receive Date: 20110610
  Receipt Date: 20110601
  Transmission Date: 20111010
  Serious: Yes (Hospitalization)
  Sender: FDA-Public Use
  Company Number: AT-GENENTECH-317709

PATIENT
  Sex: Female
  Weight: 58 kg

DRUGS (5)
  1. RITUXIMAB [Suspect]
     Indication: NON-HODGKIN'S LYMPHOMA
     Dosage: 607.75 MG, UNK
     Route: 065
     Dates: start: 20110401
  2. FOSAMAX [Concomitant]
     Indication: PRODUCT USED FOR UNKNOWN INDICATION
     Dosage: UNK UNK, 1/WEEK
     Dates: start: 20080101
  3. RITUXIMAB [Suspect]
     Dosage: UNK
     Route: 065
  4. BENDAMUSTINE [Suspect]
     Indication: NON-HODGKIN'S LYMPHOMA
     Dosage: 145.86 MG, UNK
     Route: 065
     Dates: start: 20110402
  5. COMBI-CAL [Concomitant]
     Indication: PRODUCT USED FOR UNKNOWN INDICATION
     Dosage: UNK
     Dates: start: 20080101

REACTIONS (3)
  - JOINT SWELLING [None]
  - RASH [None]
  - PYREXIA [None]
